FAERS Safety Report 5257190-0 (Version None)
Quarter: 2007Q1

REPORT INFORMATION
  Report Type: 
  Country: None (occurrence: None)
  Receive Date: 20070307
  Receipt Date: 20070305
  Transmission Date: 20070707
  Serious: Yes (Other)
  Sender: FDA-Public Use
  Company Number: US-GLAXOSMITHKLINE-A0641885A

PATIENT
  Sex: Male

DRUGS (3)
  1. COREG [Suspect]
     Indication: CARDIOMYOPATHY
     Dosage: 25MG TWICE PER DAY
     Route: 048
  2. DIOVAN [Concomitant]
  3. LISINOPRIL [Concomitant]

REACTIONS (2)
  - INFERTILITY [None]
  - SPERMATOZOA PROGRESSIVE MOTILITY DECREASED [None]
